FAERS Safety Report 15080951 (Version 1)
Quarter: 2018Q2

REPORT INFORMATION
  Report Type: Report from Study
  Country: None (occurrence: DE)
  Receive Date: 20180628
  Receipt Date: 20180628
  Transmission Date: 20180711
  Serious: Yes (Hospitalization)
  Sender: FDA-Public Use
  Company Number: DE-ABBVIE-18K-062-2400799-00

PATIENT
  Sex: Male

DRUGS (1)
  1. DUODOPA [Suspect]
     Active Substance: CARBIDOPA\LEVODOPA
     Indication: PARKINSON^S DISEASE
     Dosage: MD: 9.0ML; CRD: 6.0ML/H; ED: 2.0ML
     Route: 050
     Dates: start: 20091116

REACTIONS (1)
  - Embedded device [Unknown]

NARRATIVE: CASE EVENT DATE: 2018
